FAERS Safety Report 9380236 (Version 1)
Quarter: 2013Q3

REPORT INFORMATION
  Report Type: Spontaneous
  Country: US (occurrence: None)
  Receive Date: 20130701
  Receipt Date: 20130701
  Transmission Date: 20140515
  Serious: Yes (Other)
  Sender: FDA-Public Use
  Company Number: None

PATIENT
  Age: 29 Year
  Sex: Female
  Weight: 56.7 kg

DRUGS (1)
  1. MIRENA IUD [Suspect]
     Indication: MENORRHAGIA
     Dates: start: 20130101, end: 20130625

REACTIONS (3)
  - Pain [None]
  - Movement disorder [None]
  - Uterine spasm [None]
